FAERS Safety Report 15098441 (Version 2)
Quarter: 2018Q3

REPORT INFORMATION
  Report Type: Spontaneous
  Country: US (occurrence: US)
  Receive Date: 20180702
  Receipt Date: 20180716
  Transmission Date: 20181010
  Serious: No
  Sender: FDA-Public Use
  Company Number: US-SHIRE-US201823004

PATIENT
  Sex: Female

DRUGS (8)
  1. COLACE [Concomitant]
     Active Substance: DOCUSATE SODIUM
     Indication: PRODUCT USED FOR UNKNOWN INDICATION
  2. DILTIAZEM. [Concomitant]
     Active Substance: DILTIAZEM
     Indication: PRODUCT USED FOR UNKNOWN INDICATION
  3. XIIDRA [Suspect]
     Active Substance: LIFITEGRAST
     Indication: INTRAOCULAR PRESSURE TEST
     Dosage: 1 GTT, 2X/DAY:BID
     Route: 047
     Dates: start: 20180523, end: 201806
  4. MELATONIN [Concomitant]
     Active Substance: MELATONIN
     Indication: PRODUCT USED FOR UNKNOWN INDICATION
  5. LEVOTHYROXINE. [Concomitant]
     Active Substance: LEVOTHYROXINE
     Indication: PRODUCT USED FOR UNKNOWN INDICATION
  6. AMLODIPINE [Concomitant]
     Active Substance: AMLODIPINE BESYLATE
     Indication: PRODUCT USED FOR UNKNOWN INDICATION
  7. LUTEIN [Concomitant]
     Active Substance: LUTEIN
     Indication: PRODUCT USED FOR UNKNOWN INDICATION
  8. XIIDRA [Suspect]
     Active Substance: LIFITEGRAST
     Indication: GLAUCOMA

REACTIONS (4)
  - Visual impairment [Unknown]
  - Ocular hyperaemia [Unknown]
  - Lacrimation increased [Unknown]
  - Off label use [Unknown]
